FAERS Safety Report 10885529 (Version 1)
Quarter: 2015Q1

REPORT INFORMATION
  Report Type: Spontaneous
  Country: US (occurrence: US)
  Receive Date: 20150304
  Receipt Date: 20150304
  Transmission Date: 20150721
  Serious: No
  Sender: FDA-Public Use
  Company Number: US-TEVA-545210USA

PATIENT
  Age: 65 Year
  Sex: Female

DRUGS (1)
  1. PROVIGIL [Suspect]
     Active Substance: MODAFINIL
     Dosage: 200 MILLIGRAM DAILY; ONE HALF TABLET
     Dates: start: 20141203, end: 20141205

REACTIONS (3)
  - Eyelid oedema [Recovered/Resolved]
  - Contusion [Recovered/Resolved]
  - Face oedema [Recovered/Resolved]

NARRATIVE: CASE EVENT DATE: 20141204
